FAERS Safety Report 9441381 (Version 1)
Quarter: 2013Q3

REPORT INFORMATION
  Report Type: Report from Study
  Country: US (occurrence: US)
  Receive Date: 20130805
  Receipt Date: 20130805
  Transmission Date: 20140515
  Serious: Yes (Other)
  Sender: FDA-Public Use
  Company Number: US-ABBOTT-13P-163-1125818-00

PATIENT
  Sex: Male
  Weight: 94.43 kg

DRUGS (2)
  1. HUMIRA [Suspect]
     Indication: PSORIASIS
     Route: 058
     Dates: start: 201301, end: 201301
  2. HUMIRA [Suspect]
     Route: 058
     Dates: start: 201301

REACTIONS (2)
  - Ligament rupture [Unknown]
  - Musculoskeletal pain [Unknown]
